FAERS Safety Report 9536361 (Version 1)
Quarter: 2013Q3

REPORT INFORMATION
  Report Type: Spontaneous
  Country: US (occurrence: None)
  Receive Date: 20130917
  Receipt Date: 20130917
  Transmission Date: 20140515
  Serious: Yes (Life-Threatening)
  Sender: FDA-Public Use
  Company Number: None

PATIENT
  Age: 78 Year
  Sex: Female
  Weight: 61.24 kg

DRUGS (5)
  1. CLINDAMYCIN [Suspect]
     Indication: EAR INFECTION
     Dosage: EVERY 8 HOURS
     Route: 048
     Dates: start: 20130717, end: 20130727
  2. SIMVASTIN 40 MG [Concomitant]
  3. LEVOTHYROXINE [Concomitant]
  4. CALCIUM 600 MG [Concomitant]
  5. PROBIOTIC [Concomitant]

REACTIONS (2)
  - Clostridial infection [None]
  - Diarrhoea [None]
